FAERS Safety Report 10159959 (Version 1)
Quarter: 2014Q2

REPORT INFORMATION
  Report Type: Spontaneous
  Country: US (occurrence: US)
  Receive Date: 20140508
  Receipt Date: 20140508
  Transmission Date: 20141212
  Serious: No
  Sender: FDA-Public Use
  Company Number: US-GLAXOSMITHKLINE-A1045099A

PATIENT
  Age: 64 Year
  Sex: Female

DRUGS (2)
  1. TYKERB [Suspect]
     Indication: BILE DUCT CANCER
     Dosage: 1250MG PER DAY
     Route: 065
  2. XELODA [Suspect]
     Indication: BILE DUCT CANCER
     Route: 065

REACTIONS (8)
  - Dysgeusia [Unknown]
  - Fatigue [Unknown]
  - Nail disorder [Unknown]
  - Myalgia [Unknown]
  - Nausea [Unknown]
  - Paraesthesia [Unknown]
  - Confusional state [Not Recovered/Not Resolved]
  - Product quality issue [Unknown]
